FAERS Safety Report 24659854 (Version 1)
Quarter: 2024Q4

REPORT INFORMATION
  Report Type: Spontaneous
  Country: FR (occurrence: FR)
  Receive Date: 20241125
  Receipt Date: 20241125
  Transmission Date: 20250115
  Serious: Yes (Other)
  Sender: GLAXOSMITHKLINE
  Company Number: None

PATIENT

DRUGS (10)
  1. LAMICTAL [Interacting]
     Active Substance: LAMOTRIGINE
     Indication: Psychotic disorder
     Dosage: 175 MG, SINGLE (TOTAL)
     Route: 048
     Dates: start: 20241014, end: 20241014
  2. MIDODRINE HYDROCHLORIDE [Interacting]
     Active Substance: MIDODRINE HYDROCHLORIDE
     Indication: Product used for unknown indication
     Dosage: 1 DF, SINGLE (TOTAL)
     Route: 048
     Dates: start: 20241014, end: 20241014
  3. KEPPRA [Interacting]
     Active Substance: LEVETIRACETAM
     Indication: Product administration error
     Dosage: 1 DF, SINGLE (TOTAL)
     Route: 048
     Dates: start: 20241014, end: 20241014
  4. LOXAPINE [Interacting]
     Active Substance: LOXAPINE
     Indication: Product administration error
     Dosage: 1 DF, SINGLE (TOTAL)
     Route: 048
     Dates: start: 20241014, end: 20241014
  5. TRIHEXYPHENIDYL HYDROCHLORIDE [Interacting]
     Active Substance: TRIHEXYPHENIDYL HYDROCHLORIDE
     Indication: Product administration error
     Dosage: 1 DF, SINGLE (TOTAL)
     Route: 048
     Dates: start: 20241014, end: 20241014
  6. RISPERDAL [Interacting]
     Active Substance: RISPERIDONE
     Indication: Psychotic disorder
     Dosage: 1 DF, SINGLE (TOTAL)
     Route: 048
     Dates: start: 20241014, end: 20241014
  7. OXAZEPAM [Interacting]
     Active Substance: OXAZEPAM
     Indication: Product administration error
     Dosage: 1 DF, SINGLE (TOTAL)
     Route: 048
     Dates: start: 20241014, end: 20241014
  8. VALPROMIDE [Interacting]
     Active Substance: VALPROMIDE
     Indication: Product administration error
     Dosage: 300 MG, SINGLE (TOTAL)
     Route: 048
     Dates: start: 20241014, end: 20241014
  9. LEVOTHYROXINE [Concomitant]
     Active Substance: LEVOTHYROXINE
     Indication: Product used for unknown indication
     Dosage: 250 ?G, SINGLE (TOTAL)
     Route: 048
     Dates: start: 20241014, end: 20241014
  10. DOLIPRANE [Concomitant]
     Active Substance: ACETAMINOPHEN
     Indication: Product used for unknown indication
     Dosage: UNK
     Route: 048
     Dates: start: 20241014, end: 20241014

REACTIONS (3)
  - Coma [Recovered/Resolved]
  - Hypotension [Recovered/Resolved]
  - Drug interaction [Recovered/Resolved]

NARRATIVE: CASE EVENT DATE: 20241014
